FAERS Safety Report 4395128-9 (Version None)
Quarter: 2004Q3

REPORT INFORMATION
  Report Type: 
  Country: None (occurrence: None)
  Receive Date: 20040706
  Receipt Date: 20040623
  Transmission Date: 20050211
  Serious: Yes (Disabling)
  Sender: FDA-Public Use
  Company Number: 2004209542DE

PATIENT
  Age: 48 Year
  Sex: Male
  Weight: 78 kg

DRUGS (1)
  1. BEXTRA [Suspect]
     Indication: BACK PAIN
     Dosage: 20 MG, QD, ORAL
     Route: 048
     Dates: start: 20040108, end: 20040110

REACTIONS (3)
  - ARTHRALGIA [None]
  - GAMMA-GLUTAMYLTRANSFERASE INCREASED [None]
  - JOINT SWELLING [None]
